FAERS Safety Report 6409646-2 (Version None)
Quarter: 2009Q4

REPORT INFORMATION
  Report Type: 
  Country: None (occurrence: None)
  Receive Date: 20091021
  Receipt Date: 20091021
  Transmission Date: 20100525
  Serious: Yes (Life-Threatening)
  Sender: FDA-Public Use
  Company Number: None

PATIENT
  Age: 53 Year
  Sex: Male
  Weight: 94 kg

DRUGS (7)
  1. ALBUMIN (HUMAN) [Suspect]
     Indication: HYPOVOLAEMIA
     Dosage: 12.5 G ONCE INTRACARDIAC
     Dates: start: 20090914
  2. SOLU-MEDROL [Concomitant]
  3. CEFUROXIME [Concomitant]
  4. PHENYLEPHRINE [Concomitant]
  5. EPHEDRINE [Concomitant]
  6. VASOPRESSIN [Concomitant]
  7. FENTANYL-100 [Concomitant]

REACTIONS (3)
  - DRUG HYPERSENSITIVITY [None]
  - HYPOTENSION [None]
  - VENTRICULAR TACHYCARDIA [None]
